FAERS Safety Report 8507882-2 (Version None)
Quarter: 2012Q3

REPORT INFORMATION
  Report Type: 
  Country: None (occurrence: None)
  Receive Date: 20120713
  Receipt Date: 20120704
  Transmission Date: 20120928
  Serious: Yes (Other)
  Sender: FDA-Public Use
  Company Number: CA-JNJFOC-20120604920

PATIENT
  Sex: Female
  Weight: 65 kg

DRUGS (3)
  1. REMICADE [Suspect]
     Indication: COLITIS ULCERATIVE
     Route: 042
  2. REMICADE [Suspect]
     Route: 042
     Dates: start: 20120607, end: 20120607
  3. SOLU-CORTEF [Concomitant]
     Dosage: 200 (UNITS NOT SPECIFIED)
     Route: 042

REACTIONS (6)
  - HYPOAESTHESIA [None]
  - VOMITING [None]
  - OROPHARYNGEAL PAIN [None]
  - INFUSION RELATED REACTION [None]
  - FLUSHING [None]
  - HEADACHE [None]
